FAERS Safety Report 7723847-2 (Version None)
Quarter: 2011Q3

REPORT INFORMATION
  Report Type: 
  Country: None (occurrence: None)
  Receive Date: 20110829
  Receipt Date: 20110812
  Transmission Date: 20111222
  Serious: Yes (Death)
  Sender: FDA-Public Use
  Company Number: GGEL20110800780

PATIENT
  Age: 57 Year
  Sex: Female

DRUGS (1)
  1. METFORMIN HCL [Suspect]
     Dosage: ORAL
     Route: 048

REACTIONS (10)
  - LETHARGY [None]
  - TOXICITY TO VARIOUS AGENTS [None]
  - VOMITING [None]
  - DYSPNOEA [None]
  - CARDIAC ARREST [None]
  - SEPSIS [None]
  - ABDOMINAL PAIN [None]
  - INTESTINAL INFARCTION [None]
  - METABOLIC ACIDOSIS [None]
  - HAEMODIALYSIS [None]
